FAERS Safety Report 9692017 (Version 1)
Quarter: 2013Q4

REPORT INFORMATION
  Report Type: Spontaneous
  Country: US (occurrence: US)
  Receive Date: 20131118
  Receipt Date: 20131118
  Transmission Date: 20140711
  Serious: No
  Sender: FDA-Public Use
  Company Number: US-BIOGENIDEC-2013BI107269

PATIENT
  Sex: Female

DRUGS (2)
  1. TYSABRI [Suspect]
     Indication: MULTIPLE SCLEROSIS
     Route: 042
     Dates: start: 20100917
  2. TYSABRI [Suspect]
     Indication: MULTIPLE SCLEROSIS
     Route: 042

REACTIONS (5)
  - Mood swings [Recovered/Resolved]
  - Disturbance in attention [Recovered/Resolved]
  - Visual acuity reduced [Recovered/Resolved]
  - Motor dysfunction [Not Recovered/Not Resolved]
  - Drug effect decreased [Unknown]
